FAERS Safety Report 15235684 (Version 3)
Quarter: 2018Q3

REPORT INFORMATION
  Report Type: Spontaneous
  Country: US (occurrence: US)
  Receive Date: 20180803
  Receipt Date: 20180918
  Transmission Date: 20181010
  Serious: Yes (Hospitalization, Other)
  Sender: FDA-Public Use
  Company Number: US-BEH-2018093363

PATIENT
  Sex: Female
  Weight: 145.13 kg

DRUGS (22)
  1. OXYCODONE [Concomitant]
     Active Substance: OXYCODONE
  2. CINRYZE [Concomitant]
     Active Substance: HUMAN C1-ESTERASE INHIBITOR
  3. HAEGARDA [Suspect]
     Active Substance: HUMAN C1-ESTERASE INHIBITOR
     Indication: PROPHYLAXIS
     Dosage: 9000 IU, BIW
     Route: 058
     Dates: start: 20180724
  4. LOVENOX [Concomitant]
     Active Substance: ENOXAPARIN SODIUM
  5. VITAMIN D2 [Concomitant]
     Active Substance: ERGOCALCIFEROL
  6. STERILE WATER [Concomitant]
     Active Substance: WATER
  7. OXYCONTIN [Concomitant]
     Active Substance: OXYCODONE HYDROCHLORIDE
  8. EPINEPHRINE. [Concomitant]
     Active Substance: EPINEPHRINE
  9. FIRAZYR [Concomitant]
     Active Substance: ICATIBANT ACETATE
  10. PREDNISONE. [Concomitant]
     Active Substance: PREDNISONE
  11. HEPARIN [Concomitant]
     Active Substance: HEPARIN SODIUM
  12. HYDROMORPHONE [Concomitant]
     Active Substance: HYDROMORPHONE
  13. SODIUM CHLORIDE. [Concomitant]
     Active Substance: SODIUM CHLORIDE
  14. LORAZEPAM. [Concomitant]
     Active Substance: LORAZEPAM
  15. SERTRALINE [Concomitant]
     Active Substance: SERTRALINE HYDROCHLORIDE
  16. ONDANSETRON [Concomitant]
     Active Substance: ONDANSETRON
  17. DIPHENHYDRAMINE. [Concomitant]
     Active Substance: DIPHENHYDRAMINE
  18. ZYRTEC [Concomitant]
     Active Substance: CETIRIZINE HYDROCHLORIDE
  19. HAEGARDA [Suspect]
     Active Substance: HUMAN C1-ESTERASE INHIBITOR
     Indication: HEREDITARY ANGIOEDEMA
     Dosage: UNK
     Route: 058
  20. CETIRIZINE [Concomitant]
     Active Substance: CETIRIZINE HYDROCHLORIDE
  21. DIAZEPAM. [Concomitant]
     Active Substance: DIAZEPAM
  22. LMX                                /00033401/ [Concomitant]

REACTIONS (5)
  - Hereditary angioedema [Unknown]
  - Device related infection [Unknown]
  - Device related infection [Unknown]
  - Device related infection [Unknown]
  - Device related thrombosis [Unknown]

NARRATIVE: CASE EVENT DATE: 2018
